FAERS Safety Report 9754353 (Version 3)
Quarter: 2014Q2

REPORT INFORMATION
  Report Type: Spontaneous
  Country: None (occurrence: CA)
  Receive Date: 20131213
  Receipt Date: 20140505
  Transmission Date: 20141212
  Serious: Yes (Life-Threatening, Hospitalization)
  Sender: FDA-Public Use
  Company Number: 2013SP003602

PATIENT
  Age: 35 Year
  Sex: Male

DRUGS (2)
  1. LATUDA [Suspect]
     Route: 048
  2. LATUDA [Suspect]

REACTIONS (1)
  - Pulmonary embolism [Unknown]
